FAERS Safety Report 5481979-6 (Version None)
Quarter: 2007Q4

REPORT INFORMATION
  Report Type: 
  Country: None (occurrence: None)
  Receive Date: 20071005
  Receipt Date: 20070925
  Transmission Date: 20080405
  Serious: Yes (Death)
  Sender: FDA-Public Use
  Company Number: 2007US002322

PATIENT
  Age: 61 Year
  Sex: Female

DRUGS (8)
  1. PROGRAF [Suspect]
     Indication: RENAL TRANSPLANT
     Dosage: 2 MG, BID, ORAL
     Route: 048
     Dates: start: 20050730
  2. MYCOPHENOLATE MOFETIL [Suspect]
     Indication: RENAL TRANSPLANT
     Dosage: 1000 MG, BID, ORAL
     Route: 048
     Dates: start: 20050629
  3. ASPIRIN [Concomitant]
  4. ATORVASTTAIN (ATORVASTATIN CALCIUM) [Concomitant]
  5. LOPRESSOR [Concomitant]
  6. LISINOPRIL (LISINOPRIL DIHYDRATE) [Concomitant]
  7. TORSEMIDE [Concomitant]
  8. INSULIN (INSULIN HUMAN) [Concomitant]

REACTIONS (1)
  - LUNG CANCER METASTATIC [None]
